FAERS Safety Report 4359183-4 (Version None)
Quarter: 2004Q2

REPORT INFORMATION
  Report Type: 
  Country: None (occurrence: None)
  Receive Date: 20040512
  Receipt Date: 20040504
  Transmission Date: 20050107
  Serious: Yes (Life-Threatening, Hospitalization)
  Sender: FDA-Public Use
  Company Number: 2004PK00319

PATIENT
  Age: 48 Year
  Sex: Female
  Weight: 63 kg

DRUGS (3)
  1. ARIMIDEX [Suspect]
     Indication: BREAST CANCER
     Dosage: 1 MG DAILY PO
     Route: 048
     Dates: start: 20040101
  2. INSUMAN INFUSAT [Suspect]
     Indication: DIABETES MELLITUS
     Dosage: 21 IU DAILY
     Dates: end: 20040201
  3. INSUMAN INFUSAT [Suspect]
     Indication: DIABETES MELLITUS
     Dosage: 15 IU DAILY
     Dates: start: 20040201

REACTIONS (2)
  - DISEASE RECURRENCE [None]
  - HYPOGLYCAEMIA [None]
